FAERS Safety Report 26126905 (Version 1)
Quarter: 2025Q4

REPORT INFORMATION
  Report Type: Spontaneous
  Country: US (occurrence: US)
  Receive Date: 20251205
  Receipt Date: 20251205
  Transmission Date: 20260118
  Serious: Yes (Other)
  Sender: ELI LILLY AND COMPANY
  Company Number: US-ELI_LILLY_AND_COMPANY-US202511028529

PATIENT
  Age: 74 Year

DRUGS (1)
  1. HUMALOG [Suspect]
     Active Substance: INSULIN LISPRO
     Indication: Type 2 diabetes mellitus
     Dosage: UNK UNK, UNKNOWN
     Route: 065
     Dates: start: 2013

REACTIONS (7)
  - Weight decreased [Unknown]
  - Cardiac disorder [Unknown]
  - Renal disorder [Unknown]
  - Product storage error [Unknown]
  - Inflammation [Unknown]
  - Drug ineffective [Unknown]
  - Blood glucose abnormal [Unknown]
